FAERS Safety Report 10631043 (Version 2)
Quarter: 2014Q4

REPORT INFORMATION
  Report Type: Spontaneous
  Country: US (occurrence: US)
  Receive Date: 20141205
  Receipt Date: 20141208
  Transmission Date: 20150529
  Serious: No
  Sender: FDA-Public Use
  Company Number: US-PFIZER INC-2014334112

PATIENT

DRUGS (1)
  1. LYRICA [Suspect]
     Active Substance: PREGABALIN
     Dosage: UNK

REACTIONS (9)
  - Breast enlargement [Unknown]
  - Insomnia [Unknown]
  - Palpitations [Unknown]
  - Hypersomnia [Unknown]
  - Inflammatory bowel disease [Recovered/Resolved]
  - Asthenia [Unknown]
  - Fluid retention [Unknown]
  - Fatigue [Unknown]
  - Oedema [Unknown]
